FAERS Safety Report 12341299 (Version 1)
Quarter: 2016Q2

REPORT INFORMATION
  Report Type: Spontaneous
  Country: ES (occurrence: ES)
  Receive Date: 20160506
  Receipt Date: 20160506
  Transmission Date: 20160815
  Serious: Yes (Other)
  Sender: FDA-Public Use
  Company Number: ES-SEPTODONT-201502894

PATIENT
  Age: 41 Year
  Sex: Female

DRUGS (2)
  1. CRESOPHENE SOLUCION GOTAS ODONTOLOGICAS [Suspect]
     Active Substance: CAMPHOR\DEXAMETHASONE\PARACHLOROPHENOL CAMPHORATED\THYMOL
     Indication: ENDODONTIC PROCEDURE
     Route: 061
     Dates: start: 20150104, end: 20150104
  2. ARTICAINA + EPINEFRINA INYECTABLE ` [Suspect]
     Active Substance: ARTICAINE HYDROCHLORIDE\EPINEPHRINE BITARTRATE
     Indication: ENDODONTIC PROCEDURE
     Route: 004
     Dates: start: 20150104, end: 20150104

REACTIONS (1)
  - Toxic skin eruption [Recovered/Resolved]

NARRATIVE: CASE EVENT DATE: 20150104
